FAERS Safety Report 11558100 (Version 1)
Quarter: 2015Q3

REPORT INFORMATION
  Report Type: Spontaneous
  Country: US (occurrence: US)
  Receive Date: 20150928
  Receipt Date: 20150928
  Transmission Date: 20151125
  Serious: No
  Sender: FDA-Public Use
  Company Number: US-SUN PHARMACEUTICAL INDUSTRIES LTD-2014US-91096

PATIENT
  Age: 72 Year
  Sex: Male

DRUGS (2)
  1. LORATADINE. [Suspect]
     Active Substance: LORATADINE
     Indication: UPPER-AIRWAY COUGH SYNDROME
     Dosage: UNK
     Route: 065
     Dates: start: 20141201, end: 20141202
  2. ACETAMINOPHEN. [Concomitant]
     Active Substance: ACETAMINOPHEN
     Indication: PRODUCT USED FOR UNKNOWN INDICATION
     Dosage: 2-500MG TABLETS
     Route: 065

REACTIONS (10)
  - Chills [Unknown]
  - Pyrexia [Unknown]
  - Viral infection [Unknown]
  - Insomnia [Unknown]
  - Lacrimation increased [Unknown]
  - Influenza [Unknown]
  - Rhinorrhoea [Unknown]
  - Eye pruritus [Unknown]
  - Drug ineffective for unapproved indication [Unknown]
  - Off label use [Unknown]

NARRATIVE: CASE EVENT DATE: 201412
